FAERS Safety Report 4354580-5 (Version None)
Quarter: 2004Q2

REPORT INFORMATION
  Report Type: 
  Country: None (occurrence: None)
  Receive Date: 20040506
  Receipt Date: 20040506
  Transmission Date: 20050107
  Serious: Yes (Other)
  Sender: FDA-Public Use
  Company Number: None

PATIENT
  Sex: Female
  Weight: 56.246 kg

DRUGS (1)
  1. PRILOSEC OTC [Suspect]
     Indication: GASTRITIS
     Dosage: 20 MG DAILYOO ORAL
     Route: 048
     Dates: start: 20040426, end: 20040503

REACTIONS (3)
  - PRURITUS [None]
  - RASH ERYTHEMATOUS [None]
  - SKIN BURNING SENSATION [None]
